FAERS Safety Report 8121668-2 (Version None)
Quarter: 2012Q1

REPORT INFORMATION
  Report Type: 
  Country: None (occurrence: None)
  Receive Date: 20120208
  Receipt Date: 20120203
  Transmission Date: 20120608
  Serious: Yes (Other)
  Sender: FDA-Public Use
  Company Number: AU-PFIZER INC-2012031060

PATIENT
  Age: 24 Year
  Sex: Female

DRUGS (1)
  1. VARENICLINE TARTRATE [Suspect]
     Dosage: UNK
     Dates: start: 20120101

REACTIONS (11)
  - ANGER [None]
  - MUSCLE SPASMS [None]
  - DEPRESSION [None]
  - BREAST PAIN [None]
  - FLUID RETENTION [None]
  - ABNORMAL DREAMS [None]
  - SUICIDAL IDEATION [None]
  - CONFUSIONAL STATE [None]
  - HEADACHE [None]
  - VIOLENCE-RELATED SYMPTOM [None]
  - NAUSEA [None]
